FAERS Safety Report 7525625-6 (Version None)
Quarter: 2011Q2

REPORT INFORMATION
  Report Type: 
  Country: None (occurrence: None)
  Receive Date: 20110606
  Receipt Date: 20110523
  Transmission Date: 20111010
  Serious: Yes (Disabling, Other)
  Sender: FDA-Public Use
  Company Number: PHEH2007US03407

PATIENT
  Sex: Female
  Weight: 74.83 kg

DRUGS (40)
  1. THALIDOMIDE [Concomitant]
     Dosage: 50 MG, QID
  2. NEPHRO-VITE [Concomitant]
  3. METHADONE HCL [Concomitant]
  4. ROCALTROL [Concomitant]
  5. MYCELEX [Concomitant]
     Dosage: UNK
  6. PEN-VEE K [Concomitant]
  7. BACTRIM [Concomitant]
     Dosage: 80 MG, BIW
  8. SENSIPAR [Concomitant]
     Dosage: 30 MG, QOD
  9. LIDOCAINE [Concomitant]
  10. PRILOCAINE HYDROCHLORIDE [Concomitant]
  11. AREDIA [Suspect]
  12. RENAGEL [Concomitant]
     Dosage: 800 MG, UNK
  13. KAYEXALATE [Concomitant]
     Dosage: UNK
  14. PREDNISONE [Concomitant]
  15. MINOXIDIL [Concomitant]
  16. LORTAB [Concomitant]
     Dosage: 7.5 MG, PRN
  17. CHEMOTHERAPEUTICS NOS [Concomitant]
  18. LIPITOR [Concomitant]
  19. MAGNESIUM SULFATE [Concomitant]
  20. METOCLOPRAMIDE [Concomitant]
     Dosage: 10 MG, TID
  21. SODIUM POLYSTYRENE SULFONATE [Concomitant]
     Dosage: 60 MG, 4 TABS, QD
  22. CHLORHEXIDINE GLUCONATE [Concomitant]
  23. EPINEPHRINE [Concomitant]
  24. OXYCONTIN [Concomitant]
     Dosage: 10 MG, UNK
  25. CALCIUM CARBONATE [Concomitant]
     Dosage: 400 MG, QID
  26. AUGMENTIN '125' [Concomitant]
     Dosage: UNK
  27. AMOXICILLIN [Concomitant]
  28. NORVASC [Concomitant]
     Dosage: 10 MG, BID
  29. DIOVAN [Concomitant]
     Dosage: 160 MG, BID
  30. STEROIDS NOS [Concomitant]
     Dosage: PULSE THERAPY
  31. LYRICA [Concomitant]
  32. MIRALAX [Concomitant]
  33. PREVIDENT [Concomitant]
  34. ZOMETA [Suspect]
  35. TOPRAL XL [Concomitant]
     Dosage: 50 MG, UNK
  36. OMEPRAZOLE [Concomitant]
     Dosage: 20 MG, QD
  37. CELEXA [Concomitant]
  38. CELLCEPT [Concomitant]
  39. PROGRAF [Concomitant]
     Dosage: 1 MG, QID
  40. METOPROLOL TARTRATE [Concomitant]
     Dosage: 100 MG, BID

REACTIONS (49)
  - ANXIETY [None]
  - OSTEITIS [None]
  - BARRETT'S OESOPHAGUS [None]
  - HIATUS HERNIA [None]
  - GALLBLADDER CHOLESTEROLOSIS [None]
  - ARTERIOVENOUS FISTULA THROMBOSIS [None]
  - DIARRHOEA [None]
  - BLOOD POTASSIUM INCREASED [None]
  - JAW FRACTURE [None]
  - BONE DISORDER [None]
  - ABDOMINAL PAIN UPPER [None]
  - BACK PAIN [None]
  - ARTERIOVENOUS GRAFT ANEURYSM [None]
  - TOOTH ABSCESS [None]
  - IMPAIRED GASTRIC EMPTYING [None]
  - BLOOD GLUCOSE DECREASED [None]
  - CHANGE OF BOWEL HABIT [None]
  - DENTAL CARIES [None]
  - GENERAL PHYSICAL HEALTH DETERIORATION [None]
  - DECREASED INTEREST [None]
  - HAEMATEMESIS [None]
  - RENAL FAILURE ACUTE [None]
  - OSTEONECROSIS OF JAW [None]
  - PAIN [None]
  - DIVERTICULUM [None]
  - ANAEMIA [None]
  - GASTRITIS [None]
  - BLOOD CALCIUM DECREASED [None]
  - OEDEMA [None]
  - NEOPLASM MALIGNANT [None]
  - ULCER [None]
  - ACUTE LEUKAEMIA [None]
  - EROSIVE OESOPHAGITIS [None]
  - COUGH [None]
  - CHOLECYSTITIS [None]
  - INFLUENZA LIKE ILLNESS [None]
  - DYSPEPSIA [None]
  - CELLULITIS [None]
  - GINGIVAL RECESSION [None]
  - MELANOCYTIC NAEVUS [None]
  - ORAL CAVITY FISTULA [None]
  - AZOTAEMIA [None]
  - HEADACHE [None]
  - POST HERPETIC NEURALGIA [None]
  - EXCORIATION [None]
  - COLONIC POLYP [None]
  - HAEMORRHOIDS [None]
  - ARTERIOVENOUS FISTULA SITE COMPLICATION [None]
  - GASTRITIS ATROPHIC [None]
